FAERS Safety Report 5640131-1 (Version None)
Quarter: 2008Q1

REPORT INFORMATION
  Report Type: 
  Country: None (occurrence: None)
  Receive Date: 20080226
  Receipt Date: 20080226
  Transmission Date: 20080703
  Serious: No
  Sender: FDA-Public Use
  Company Number: None

PATIENT
  Age: 61 Year
  Sex: Female
  Weight: 102.0593 kg

DRUGS (1)
  1. CRESTOR [Suspect]
     Indication: BLOOD CHOLESTEROL INCREASED
     Dosage: 20 MG  DAILY  PO
     Route: 048
     Dates: start: 20071115, end: 20080102

REACTIONS (2)
  - MOVEMENT DISORDER [None]
  - MYALGIA [None]
